FAERS Safety Report 6147887-2 (Version None)
Quarter: 2009Q2

REPORT INFORMATION
  Report Type: 
  Country: None (occurrence: None)
  Receive Date: 20090408
  Receipt Date: 20090331
  Transmission Date: 20091009
  Serious: Yes (Death)
  Sender: FDA-Public Use
  Company Number: FR-PFIZER-2009190622

PATIENT

DRUGS (10)
  1. MEDROL [Suspect]
     Indication: BRONCHITIS
     Dosage: UNK
     Route: 048
     Dates: start: 20071223, end: 20071228
  2. TRIATEC [Suspect]
     Indication: ISCHAEMIC CARDIOMYOPATHY
     Dosage: 2.5 MG, 1X/DAY
     Route: 048
  3. OMEPRAZOL [Suspect]
     Dosage: 20 MG, 1X/DAY
     Route: 048
  4. KARDEGIC [Suspect]
     Indication: PROPHYLAXIS
     Dosage: 75 MG, 1X/DAY
     Route: 048
  5. IKOREL [Suspect]
     Indication: CORONARY ARTERY INSUFFICIENCY
     Dosage: 5 MG, 2X/DAY
     Route: 048
  6. CARDENSIEL [Suspect]
     Indication: ISCHAEMIC CARDIOMYOPATHY
     Dosage: 5 MG, 1X/DAY
     Route: 048
  7. FUROSEMIDE [Suspect]
     Indication: ISCHAEMIC CARDIOMYOPATHY
     Dosage: 1 DF, 1X/DAY
     Route: 048
  8. CRESTOR [Suspect]
     Indication: PROPHYLAXIS
     Dosage: 10 MG, 1X/DAY
     Route: 048
  9. LEVOTHYROXINE SODIUM [Suspect]
     Dosage: 25 UG, 1X/DAY
     Route: 048
  10. ROCEPHIN [Suspect]
     Indication: LUNG INFECTION
     Dosage: UNK
     Route: 030
     Dates: start: 20071225

REACTIONS (5)
  - DERMATITIS BULLOUS [None]
  - DYSPNOEA [None]
  - GENERALISED ERYTHEMA [None]
  - HYPOTHERMIA [None]
  - OEDEMA [None]
